FAERS Safety Report 20189323 (Version 1)
Quarter: 2021Q4

REPORT INFORMATION
  Report Type: Spontaneous
  Country: PL (occurrence: PL)
  Receive Date: 20211215
  Receipt Date: 20211215
  Transmission Date: 20220304
  Serious: Yes (Other)
  Sender: FDA-Public Use
  Company Number: PL-JNJFOC-20211212424

PATIENT
  Age: 27 Year
  Sex: Male

DRUGS (2)
  1. SIMPONI [Suspect]
     Active Substance: GOLIMUMAB
     Indication: Ankylosing spondylitis
     Route: 058
     Dates: start: 20160823
  2. SIMPONI [Suspect]
     Active Substance: GOLIMUMAB
     Indication: Spondyloarthropathy

REACTIONS (3)
  - Ankylosing spondylitis [Unknown]
  - Chronic sinusitis [Unknown]
  - Upper respiratory tract infection [Unknown]

NARRATIVE: CASE EVENT DATE: 20181001
